FAERS Safety Report 14915927 (Version 1)
Quarter: 2018Q2

REPORT INFORMATION
  Report Type: Spontaneous
  Country: US (occurrence: US)
  Receive Date: 20180518
  Receipt Date: 20180518
  Transmission Date: 20180711
  Serious: No
  Sender: FDA-Public Use
  Company Number: US-009507513-1805USA007356

PATIENT
  Sex: Female
  Weight: 61.22 kg

DRUGS (1)
  1. NEXPLANON [Suspect]
     Active Substance: ETONOGESTREL
     Indication: CONTRACEPTION
     Dosage: EVERY 3 YEARS IMPLANT
     Route: 059
     Dates: start: 20161128

REACTIONS (4)
  - Amenorrhoea [Unknown]
  - Rash [Unknown]
  - Contusion [Unknown]
  - Metrorrhagia [Unknown]

NARRATIVE: CASE EVENT DATE: 2018
